FAERS Safety Report 16697976 (Version 2)
Quarter: 2019Q3

REPORT INFORMATION
  Report Type: Report from Study
  Country: US (occurrence: US)
  Receive Date: 20190813
  Receipt Date: 20190918
  Transmission Date: 20191004
  Serious: Yes (Hospitalization)
  Sender: FDA-Public Use
  Company Number: US-PFIZER INC-2019291918

PATIENT
  Age: 82 Year
  Sex: Female

DRUGS (2)
  1. IBRANCE [Suspect]
     Active Substance: PALBOCICLIB
     Indication: BREAST CANCER
     Dosage: 100 MG, CYCLIC (DAILY, 21 DAYS ON, 7 DAYS OFF)
     Route: 048
     Dates: start: 20190701, end: 20190719
  2. IBRANCE [Suspect]
     Active Substance: PALBOCICLIB
     Dosage: 100 MG, CYCLIC (DAILY, 21 DAYS ON, 7 DAYS OFF)
     Route: 048

REACTIONS (4)
  - Fatigue [Unknown]
  - Pneumonia [Unknown]
  - Dyspnoea [Recovered/Resolved]
  - Neoplasm progression [Unknown]

NARRATIVE: CASE EVENT DATE: 201907
